FAERS Safety Report 9347681 (Version 2)
Quarter: 2013Q2

REPORT INFORMATION
  Report Type: Spontaneous
  Country: LB (occurrence: LB)
  Receive Date: 20130614
  Receipt Date: 20130620
  Transmission Date: 20140414
  Serious: Yes (Death, Hospitalization)
  Sender: FDA-Public Use
  Company Number: LB-ALEXION PHARMACEUTICALS INC.-A201301328

PATIENT
  Age: 18 Year
  Sex: Male

DRUGS (5)
  1. SOLIRIS 300MG [Suspect]
     Indication: PAROXYSMAL NOCTURNAL HAEMOGLOBINURIA
     Dosage: 600 MG, QW
     Route: 042
     Dates: start: 20130220, end: 20130320
  2. SOLIRIS 300MG [Suspect]
     Dosage: 600 MG, Q2W
     Route: 042
     Dates: start: 20130320, end: 20130516
  3. INNOHEP [Concomitant]
     Indication: THROMBOSIS
     Dosage: 10000 IU
     Route: 058
     Dates: start: 20130313, end: 20130601
  4. LASIX [Concomitant]
     Dosage: 40 MG
     Route: 048
     Dates: start: 20130313, end: 20130601
  5. ALDACTONE [Concomitant]
     Dosage: 50 MG
     Route: 048
     Dates: start: 20130313, end: 20130601

REACTIONS (4)
  - Hepatic failure [Fatal]
  - Condition aggravated [Fatal]
  - Hepatic vein thrombosis [Fatal]
  - Thrombosis in device [Recovering/Resolving]
